FAERS Safety Report 24565605 (Version 2)
Quarter: 2024Q4

REPORT INFORMATION
  Report Type: Report from Study
  Country: US (occurrence: US)
  Receive Date: 20241030
  Receipt Date: 20241101
  Transmission Date: 20250114
  Serious: Yes (Other)
  Sender: REGENERON
  Company Number: US-REGENERON PHARMACEUTICALS, INC.-2024-095765

PATIENT
  Sex: Male

DRUGS (1)
  1. CEMIPLIMAB [Suspect]
     Active Substance: CEMIPLIMAB
     Indication: Basal cell carcinoma
     Dosage: 350 MG, Q3W
     Route: 042
     Dates: start: 20240401

REACTIONS (4)
  - Renal function test abnormal [Recovered/Resolved]
  - Liver function test increased [Recovered/Resolved]
  - Unevaluable event [Unknown]
  - Drug ineffective [Unknown]

NARRATIVE: CASE EVENT DATE: 20240624
